FAERS Safety Report 7083561-6 (Version None)
Quarter: 2010Q4

REPORT INFORMATION
  Report Type: 
  Country: None (occurrence: None)
  Receive Date: 20101104
  Receipt Date: 20101025
  Transmission Date: 20110411
  Serious: Yes (Hospitalization)
  Sender: FDA-Public Use
  Company Number: CA-JNJFOC-20101007582

PATIENT
  Sex: Female
  Weight: 78.3 kg

DRUGS (21)
  1. REMICADE [Suspect]
     Indication: RHEUMATOID ARTHRITIS
     Route: 042
  2. REMICADE [Suspect]
     Route: 042
  3. CALTRATE WITH VITAMIN D [Concomitant]
     Indication: MEDICAL DIET
     Route: 048
  4. CLONAZEPAM [Concomitant]
     Route: 048
  5. TRIAMZIDE [Concomitant]
     Route: 048
  6. ALENDRONATE SODIUM [Concomitant]
     Indication: OSTEOPOROSIS PROPHYLAXIS
     Route: 048
  7. FOLIC ACID [Concomitant]
     Route: 048
  8. PANTOLOC [Concomitant]
     Indication: DYSPEPSIA
  9. MEDROL [Concomitant]
     Indication: RHEUMATOID ARTHRITIS
     Route: 048
  10. SYNTHROID [Concomitant]
     Indication: HYPOTHYROIDISM
  11. EFFEXOR [Concomitant]
     Indication: DEPRESSION
     Route: 048
  12. EFFEXOR [Concomitant]
     Route: 048
  13. ACETAMINOPHEN [Concomitant]
     Indication: PAIN
     Route: 048
  14. METHOTREXATE [Concomitant]
     Indication: RHEUMATOID ARTHRITIS
     Route: 048
  15. METHOTREXATE [Concomitant]
     Route: 048
  16. METHOTREXATE [Concomitant]
     Route: 048
  17. METHOTREXATE [Concomitant]
     Route: 048
  18. CRESTOR [Concomitant]
     Indication: BLOOD CHOLESTEROL
     Route: 048
  19. CRESTOR [Concomitant]
     Route: 048
  20. PLAVIX [Concomitant]
     Route: 048
  21. SUPRADOL [Concomitant]
     Indication: PAIN
     Route: 048

REACTIONS (3)
  - PAIN IN EXTREMITY [None]
  - THROMBOSIS [None]
  - VASCULAR GRAFT [None]
